FAERS Safety Report 6121244-7 (Version None)
Quarter: 2009Q1

REPORT INFORMATION
  Report Type: 
  Country: None (occurrence: None)
  Receive Date: 20090312
  Receipt Date: 20090312
  Transmission Date: 20090719
  Serious: Yes (Other)
  Sender: FDA-Public Use
  Company Number: None

PATIENT
  Age: 43 Year
  Sex: Female
  Weight: 92.9874 kg

DRUGS (4)
  1. REMICADE [Suspect]
     Indication: CROHN'S DISEASE
     Dosage: 1025 MG Q8 WEEKS IV DRIP
     Route: 041
     Dates: start: 20080305, end: 20081119
  2. PENTASA [Concomitant]
  3. CAMILLA BIRTH CONTROL PILLS [Concomitant]
  4. METFORMIN HCL [Concomitant]

REACTIONS (10)
  - ARTHRALGIA [None]
  - ARTHRITIS [None]
  - AUTOIMMUNE DISORDER [None]
  - BLOOD IMMUNOGLOBULIN A INCREASED [None]
  - BLOOD IMMUNOGLOBULIN E INCREASED [None]
  - EYE INFLAMMATION [None]
  - FATIGUE [None]
  - PRURITUS [None]
  - PYREXIA [None]
  - SERUM SICKNESS [None]
